FAERS Safety Report 9315581 (Version 1)
Quarter: 2013Q2

REPORT INFORMATION
  Report Type: Spontaneous
  Country: BE (occurrence: BE)
  Receive Date: 20130529
  Receipt Date: 20130529
  Transmission Date: 20140414
  Serious: Yes (Hospitalization)
  Sender: FDA-Public Use
  Company Number: BE-B.I. PHARMACEUTICALS,INC./RIDGEFIELD-2013-BL-00260BL

PATIENT
  Age: 71 Year
  Sex: Female

DRUGS (5)
  1. PRADAXA [Suspect]
     Indication: ATRIAL FIBRILLATION
     Dates: start: 201209
  2. EMCONCOR [Concomitant]
     Indication: HYPERTENSION
  3. HYPERLIPEN [Concomitant]
     Indication: BLOOD CHOLESTEROL ABNORMAL
  4. LIPITOR [Concomitant]
     Indication: BLOOD CHOLESTEROL ABNORMAL
  5. LANOXIN [Concomitant]
     Indication: ARRHYTHMIA

REACTIONS (1)
  - Cerebrovascular accident [Unknown]
